FAERS Safety Report 4532128-X (Version None)
Quarter: 2004Q4

REPORT INFORMATION
  Report Type: 
  Country: None (occurrence: None)
  Receive Date: 20041217
  Receipt Date: 20041201
  Transmission Date: 20050328
  Serious: No
  Sender: FDA-Public Use
  Company Number: 230055M04GBR

PATIENT
  Age: 35 Year
  Sex: Female
  Weight: 54.88 kg

DRUGS (2)
  1. REBIF [Suspect]
     Indication: MULTIPLE SCLEROSIS
     Dosage: 44 MCG, 3 IN 1 WEEKS, ORAL
     Route: 048
     Dates: start: 20030124, end: 20040923
  2. BACLOFEN [Concomitant]

REACTIONS (8)
  - ANOREXIA [None]
  - FEELING ABNORMAL [None]
  - LYMPHOCYTE COUNT DECREASED [None]
  - MULTIPLE SCLEROSIS RELAPSE [None]
  - NEUTROPHIL COUNT DECREASED [None]
  - WEIGHT DECREASED [None]
  - WHITE BLOOD CELL COUNT ABNORMAL [None]
  - WHITE BLOOD CELL COUNT DECREASED [None]
